FAERS Safety Report 10915897 (Version 1)
Quarter: 2015Q1

REPORT INFORMATION
  Report Type: Spontaneous
  Country: US (occurrence: None)
  Receive Date: 20150311
  Receipt Date: 20150311
  Transmission Date: 20150721
  Serious: No
  Sender: FDA-Public Use
  Company Number: None

PATIENT
  Age: 73 Year
  Sex: Female
  Weight: 59.42 kg

DRUGS (13)
  1. DIGOXIN. [Concomitant]
     Active Substance: DIGOXIN
  2. SYNT ROLD [Concomitant]
  3. LIVALO [Suspect]
     Active Substance: PITAVASTATIN CALCIUM
     Dates: start: 20150115, end: 20150130
  4. PRADAXA [Concomitant]
     Active Substance: DABIGATRAN ETEXILATE MESYLATE
  5. GABAPENTIN. [Concomitant]
     Active Substance: GABAPENTIN
  6. BUMEX [Concomitant]
     Active Substance: BUMETANIDE
  7. VITAMIN D [Concomitant]
     Active Substance: CHOLECALCIFEROL
  8. LIVALO [Suspect]
     Active Substance: PITAVASTATIN CALCIUM
     Indication: ARTERIOSCLEROSIS
     Dates: start: 20150115, end: 20150130
  9. CORORY [Concomitant]
  10. ASPIRIN. [Concomitant]
     Active Substance: ASPIRIN
  11. LISINOPRIL. [Concomitant]
     Active Substance: LISINOPRIL
  12. METOLAZONE. [Concomitant]
     Active Substance: METOLAZONE
  13. ALDANTONE [Concomitant]

REACTIONS (7)
  - Asthenia [None]
  - Pain [None]
  - Weight increased [None]
  - Myalgia [None]
  - Gait disturbance [None]
  - Arthralgia [None]
  - Feeling abnormal [None]

NARRATIVE: CASE EVENT DATE: 20150115
